FAERS Safety Report 23804188 (Version 19)
Quarter: 2025Q3

REPORT INFORMATION
  Report Type: Spontaneous
  Country: CA (occurrence: CA)
  Receive Date: 20240501
  Receipt Date: 20250828
  Transmission Date: 20251021
  Serious: Yes (Hospitalization, Other)
  Sender: OTSUKA
  Company Number: CA-OTSUKA-2024_011119

PATIENT
  Sex: Male

DRUGS (16)
  1. ABILIFY MAINTENA [Suspect]
     Active Substance: ARIPIPRAZOLE
     Indication: Blood prolactin increased
     Dosage: 200 MG, QM
     Route: 030
     Dates: start: 2017
  2. ABILIFY MAINTENA [Suspect]
     Active Substance: ARIPIPRAZOLE
     Dosage: 300 MG, QM
     Route: 030
  3. ABILIFY MAINTENA [Suspect]
     Active Substance: ARIPIPRAZOLE
     Dosage: 400 MG, QM
     Route: 030
  4. ABILIFY MAINTENA [Suspect]
     Active Substance: ARIPIPRAZOLE
     Dosage: 500 MG, QM
     Route: 030
     Dates: end: 2018
  5. ABILIFY MAINTENA [Suspect]
     Active Substance: ARIPIPRAZOLE
     Route: 030
     Dates: start: 2017
  6. ABILIFY MAINTENA [Suspect]
     Active Substance: ARIPIPRAZOLE
     Route: 030
     Dates: start: 202502
  7. ABILIFY MAINTENA [Suspect]
     Active Substance: ARIPIPRAZOLE
     Dosage: 400 MG, QM (1 EVERY 1 MONTH)
     Route: 030
  8. ABILIFY MAINTENA [Suspect]
     Active Substance: ARIPIPRAZOLE
     Route: 065
  9. ABILIFY [Suspect]
     Active Substance: ARIPIPRAZOLE
     Indication: Blood prolactin increased
     Dosage: 2 MG, QD (IN MORNING)
     Route: 065
  10. INVEGA SUSTENNA [Suspect]
     Active Substance: PALIPERIDONE PALMITATE
     Indication: Product used for unknown indication
     Route: 065
     Dates: start: 2021
  11. CLONAZEPAM [Suspect]
     Active Substance: CLONAZEPAM
     Indication: Product used for unknown indication
     Route: 065
  12. PALIPERIDONE PALMITATE [Suspect]
     Active Substance: PALIPERIDONE PALMITATE
     Indication: Product used for unknown indication
     Route: 065
  13. COGENTIN [Concomitant]
     Active Substance: BENZTROPINE MESYLATE
     Indication: Product used for unknown indication
     Route: 065
  14. ATIVAN [Concomitant]
     Active Substance: LORAZEPAM
     Indication: Product used for unknown indication
     Route: 065
  15. BENADRYL [Concomitant]
     Active Substance: DIPHENHYDRAMINE HYDROCHLORIDE
     Indication: Product used for unknown indication
     Route: 065
  16. CLOZARIL [Concomitant]
     Active Substance: CLOZAPINE
     Indication: Product used for unknown indication
     Route: 065

REACTIONS (42)
  - Tendon disorder [Not Recovered/Not Resolved]
  - Tooth disorder [Not Recovered/Not Resolved]
  - Aphonia [Recovering/Resolving]
  - Autism spectrum disorder [Unknown]
  - Dysphonia [Recovering/Resolving]
  - Limb discomfort [Not Recovered/Not Resolved]
  - Hallucination, auditory [Not Recovered/Not Resolved]
  - Bruxism [Not Recovered/Not Resolved]
  - Asthenia [Not Recovered/Not Resolved]
  - Somnolence [Not Recovered/Not Resolved]
  - Suicidal ideation [Unknown]
  - Tendonitis [Unknown]
  - Tongue movement disturbance [Unknown]
  - Screaming [Not Recovered/Not Resolved]
  - Physical disability [Unknown]
  - Ear pain [Unknown]
  - Alexithymia [Not Recovered/Not Resolved]
  - Impaired work ability [Not Recovered/Not Resolved]
  - Impaired quality of life [Unknown]
  - Ear disorder [Unknown]
  - Back disorder [Unknown]
  - Arthropathy [Unknown]
  - Sexual dysfunction [Unknown]
  - Incoherent [Unknown]
  - Mental disorder [Unknown]
  - Libido disorder [Unknown]
  - Hypotension [Unknown]
  - Hypoaesthesia [Unknown]
  - Toothache [Recovered/Resolved]
  - Aggression [Unknown]
  - Blood prolactin increased [Unknown]
  - Headache [Unknown]
  - Dyskinesia [Unknown]
  - Speech disorder [Unknown]
  - Anxiety [Not Recovered/Not Resolved]
  - Fatigue [Unknown]
  - Overdose [Not Recovered/Not Resolved]
  - Drug ineffective for unapproved indication [Unknown]
  - Housebound [Not Recovered/Not Resolved]
  - Loss of employment [Unknown]
  - Product use in unapproved indication [Unknown]
  - Inappropriate schedule of product administration [Unknown]

NARRATIVE: CASE EVENT DATE: 20170101
